FAERS Safety Report 15878027 (Version 2)
Quarter: 2019Q1

REPORT INFORMATION
  Report Type: Spontaneous
  Country: US (occurrence: US)
  Receive Date: 20190128
  Receipt Date: 20190128
  Transmission Date: 20190417
  Serious: No
  Sender: FDA-Public Use
  Company Number: US-UNICHEM PHARMACEUTICALS (USA) INC-UCM201809-000223

PATIENT
  Sex: Female
  Weight: 54 kg

DRUGS (3)
  1. TYLENOL [Concomitant]
     Active Substance: ACETAMINOPHEN
     Indication: HEADACHE
  2. ADVIL [Concomitant]
     Active Substance: IBUPROFEN
  3. MELOXICAM. [Suspect]
     Active Substance: MELOXICAM
     Indication: EPICONDYLITIS

REACTIONS (3)
  - Dyspepsia [Recovered/Resolved]
  - Underdose [Unknown]
  - Urticaria [Not Recovered/Not Resolved]
